FAERS Safety Report 4805999-7 (Version None)
Quarter: 2005Q4

REPORT INFORMATION
  Report Type: 
  Country: None (occurrence: None)
  Receive Date: 20051021
  Receipt Date: 20051019
  Transmission Date: 20060501
  Serious: Yes (Other)
  Sender: FDA-Public Use
  Company Number: US-GLAXOSMITHKLINE-A0578801A

PATIENT
  Age: 3 Year
  Sex: Female

DRUGS (2)
  1. AUGMENTIN '125' [Suspect]
     Indication: SKIN INFECTION
     Dosage: 250MG PER DAY
     Route: 048
     Dates: start: 20051011, end: 20051018
  2. RISPERDAL [Concomitant]

REACTIONS (1)
  - MANIA [None]
